FAERS Safety Report 6161880-5 (Version None)
Quarter: 2009Q2

REPORT INFORMATION
  Report Type: 
  Country: None (occurrence: None)
  Receive Date: 20090421
  Receipt Date: 20090417
  Transmission Date: 20091009
  Serious: No
  Sender: FDA-Public Use
  Company Number: B0557256A

PATIENT
  Age: 10 Year
  Sex: Female

DRUGS (1)
  1. CLENIL [Suspect]
     Indication: ASTHMA
     Dosage: 50MCG TWICE PER DAY
     Route: 055
     Dates: start: 20081107, end: 20081127

REACTIONS (1)
  - COUGH [None]
